FAERS Safety Report 17989495 (Version 2)
Quarter: 2021Q2

REPORT INFORMATION
  Report Type: Spontaneous
  Country: US (occurrence: US)
  Receive Date: 20200707
  Receipt Date: 20210409
  Transmission Date: 20210717
  Serious: No
  Sender: FDA-Public Use
  Company Number: US-GILEAD-2020-0479164

PATIENT
  Age: 37 Year
  Sex: Male

DRUGS (1)
  1. ATRIPLA [Suspect]
     Active Substance: EFAVIRENZ\EMTRICITABINE\TENOFOVIR DISOPROXIL FUMARATE
     Indication: HIV INFECTION
     Dosage: UNK
     Route: 065
     Dates: start: 201006, end: 2017

REACTIONS (4)
  - Tooth loss [Unknown]
  - Bone density decreased [Unknown]
  - Teeth brittle [Unknown]
  - Tooth fracture [Unknown]

NARRATIVE: CASE EVENT DATE: 201410
